FAERS Safety Report 12402660 (Version 1)
Quarter: 2016Q2

REPORT INFORMATION
  Report Type: Spontaneous
  Country: US (occurrence: US)
  Receive Date: 20160525
  Receipt Date: 20160525
  Transmission Date: 20160815
  Serious: No
  Sender: FDA-Public Use
  Company Number: US-TEVA-560443USA

PATIENT
  Sex: Male

DRUGS (1)
  1. CLOPIDOGREL [Suspect]
     Active Substance: CLOPIDOGREL BISULFATE
     Indication: CARDIOVASCULAR EVENT PROPHYLAXIS

REACTIONS (6)
  - Glossodynia [Unknown]
  - Nausea [Recovered/Resolved]
  - Muscle spasms [Unknown]
  - Dyspepsia [Recovered/Resolved]
  - Oral discomfort [Recovered/Resolved]
  - Diarrhoea [Recovered/Resolved]
